FAERS Safety Report 5939863-7 (Version None)
Quarter: 2008Q4

REPORT INFORMATION
  Report Type: 
  Country: None (occurrence: None)
  Receive Date: 20081104
  Receipt Date: 20081028
  Transmission Date: 20090506
  Serious: Yes (Life-Threatening, Disabling, Other)
  Sender: FDA-Public Use
  Company Number: DE-JNJFOC-20081003287

PATIENT
  Sex: Female

DRUGS (12)
  1. INVEGA [Suspect]
     Route: 048
  2. INVEGA [Suspect]
     Indication: SCHIZOPHRENIA
     Route: 048
  3. RISPERDAL [Suspect]
     Route: 048
  4. RISPERDAL [Suspect]
     Route: 048
  5. RISPERDAL [Suspect]
     Indication: SCHIZOPHRENIA
     Route: 048
  6. PIPAMPERONE [Concomitant]
     Route: 048
  7. TIM-OPHTAL [Concomitant]
     Route: 048
  8. VALPROATE SODIUM [Concomitant]
     Route: 065
  9. VALPROATE SODIUM [Concomitant]
     Route: 065
  10. AKINETON [Concomitant]
     Route: 065
  11. AKINETON [Concomitant]
     Route: 065
  12. EUTHYROX [Concomitant]
     Route: 048

REACTIONS (10)
  - AKATHISIA [None]
  - BLOOD PROLACTIN INCREASED [None]
  - BREAST CANCER METASTATIC [None]
  - ECZEMA [None]
  - GAIT DISTURBANCE [None]
  - GALACTORRHOEA [None]
  - METASTATIC NEOPLASM [None]
  - MUSCULOSKELETAL STIFFNESS [None]
  - RASH [None]
  - WEIGHT INCREASED [None]
